FAERS Safety Report 16480435 (Version 2)
Quarter: 2019Q3

REPORT INFORMATION
  Report Type: Spontaneous
  Country: US (occurrence: US)
  Receive Date: 20190626
  Receipt Date: 20190712
  Transmission Date: 20191004
  Serious: No
  Sender: FDA-Public Use
  Company Number: US-ACTELION-A-NJ2019-191942

PATIENT
  Sex: Female

DRUGS (7)
  1. TRACLEER [Suspect]
     Active Substance: BOSENTAN
     Dosage: 125 MG, BID
     Route: 048
  2. TRACLEER [Suspect]
     Active Substance: BOSENTAN
     Indication: PULMONARY ARTERIAL HYPERTENSION
     Dosage: 125 MG, BID
     Route: 048
  3. TYLENOL [Concomitant]
     Active Substance: ACETAMINOPHEN
  4. WARFARIN [Concomitant]
     Active Substance: WARFARIN
  5. TRACLEER [Suspect]
     Active Substance: BOSENTAN
     Dosage: 62.5 MG, BID
     Route: 048
  6. DILTIAZEM. [Concomitant]
     Active Substance: DILTIAZEM
  7. OFEV [Concomitant]
     Active Substance: NINTEDANIB

REACTIONS (2)
  - Liver function test increased [Unknown]
  - Toxicity to various agents [Unknown]
